FAERS Safety Report 6746820-X (Version None)
Quarter: 2010Q2

REPORT INFORMATION
  Report Type: 
  Country: None (occurrence: None)
  Receive Date: 20100528
  Receipt Date: 20100114
  Transmission Date: 20101027
  Serious: No
  Sender: FDA-Public Use
  Company Number: A0839449A

PATIENT
  Age: 15 Year
  Sex: Female

DRUGS (2)
  1. VENTOLIN [Suspect]
     Dosage: 2PUFF AS REQUIRED
     Route: 055
  2. NO CONCURRENT MEDICATION [Concomitant]

REACTIONS (1)
  - DRUG INEFFECTIVE [None]
